FAERS Safety Report 14290960 (Version 2)
Quarter: 2018Q1

REPORT INFORMATION
  Report Type: Report from Study
  Country: US (occurrence: MX)
  Receive Date: 20171215
  Receipt Date: 20180126
  Transmission Date: 20180509
  Serious: Yes (Other)
  Sender: FDA-Public Use
  Company Number: US-SUNOVION-2017SUN005322

PATIENT
  Sex: Female

DRUGS (6)
  1. MODURETIC 5-50 [Concomitant]
     Active Substance: AMILORIDE HYDROCHLORIDE\HYDROCHLOROTHIAZIDE
     Dosage: UNK
  2. INDACATEROL AND GLYCOPYRROLATE [Suspect]
     Active Substance: GLYCOPYRROLATE\INDACATEROL MALEATE
     Indication: DYSPNOEA EXERTIONAL
     Dosage: 1 DF, QD (110/50 UG 1 DF, QD)
     Route: 055
     Dates: end: 20171205
  3. BEZAFIBRATE [Concomitant]
     Active Substance: BEZAFIBRATE
     Dosage: UNK
  4. INDACATEROL AND GLYCOPYRROLATE [Suspect]
     Active Substance: GLYCOPYRROLATE\INDACATEROL MALEATE
     Dosage: 1 DF, QD (110/50 UG 1 DF, QD (IN THE MORNING IN 1 OR 2 INHALATIONS)
     Route: 055
  5. VYTORIN [Concomitant]
     Active Substance: EZETIMIBE\SIMVASTATIN
     Dosage: UNK (10/40 OT)
  6. CANDESARTAN. [Concomitant]
     Active Substance: CANDESARTAN
     Dosage: UNK

REACTIONS (7)
  - Malaise [Recovered/Resolved]
  - Product use in unapproved indication [Recovered/Resolved]
  - Dizziness [Not Recovered/Not Resolved]
  - Tachycardia [Unknown]
  - Wrong technique in product usage process [Recovered/Resolved]
  - Chest discomfort [Recovered/Resolved]
  - Arrhythmia [Not Recovered/Not Resolved]
